FAERS Safety Report 4421664-2 (Version None)
Quarter: 2004Q3

REPORT INFORMATION
  Report Type: 
  Country: None (occurrence: None)
  Receive Date: 20040809
  Receipt Date: 20040809
  Transmission Date: 20050211
  Serious: Yes (Life-Threatening, Hospitalization)
  Sender: FDA-Public Use
  Company Number: None

PATIENT
  Sex: Male
  Weight: 78 kg

DRUGS (2)
  1. BACTRIM DS [Suspect]
     Indication: BRONCHITIS
     Dosage: 1 TAB PO BID
     Route: 048
     Dates: start: 20040715
  2. BACTRIM DS [Suspect]
     Indication: BRONCHITIS
     Dosage: 1 TAB PO BID
     Route: 048
     Dates: start: 20040725

REACTIONS (1)
  - TOXIC EPIDERMAL NECROLYSIS [None]
